FAERS Safety Report 5923000-9 (Version None)
Quarter: 2008Q4

REPORT INFORMATION
  Report Type: 
  Country: None (occurrence: None)
  Receive Date: 20081018
  Receipt Date: 20081007
  Transmission Date: 20090506
  Serious: Yes (Hospitalization)
  Sender: FDA-Public Use
  Company Number: ES-PFIZER INC-2008061614

PATIENT
  Sex: Female
  Weight: 54 kg

DRUGS (3)
  1. GABAPENTIN [Suspect]
     Indication: NEURALGIA
     Route: 048
     Dates: start: 20080701, end: 20080715
  2. LIMOVAN [Suspect]
     Dates: start: 20080707, end: 20080714
  3. ORFIDAL [Concomitant]
     Route: 048
     Dates: end: 20080630

REACTIONS (4)
  - AMNESIA [None]
  - CONFUSIONAL STATE [None]
  - DISORIENTATION [None]
  - TREMOR [None]
